FAERS Safety Report 6488042-6 (Version None)
Quarter: 2009Q4

REPORT INFORMATION
  Report Type: 
  Country: None (occurrence: None)
  Receive Date: 20091209
  Receipt Date: 20091209
  Transmission Date: 20100525
  Serious: Yes (Hospitalization)
  Sender: FDA-Public Use
  Company Number: None

PATIENT
  Sex: Male
  Weight: 84.9 kg

DRUGS (1)
  1. FLUCONAZOLE [Suspect]

REACTIONS (12)
  - ABDOMINAL PAIN [None]
  - ACUTE GRAFT VERSUS HOST DISEASE IN INTESTINE [None]
  - ASTHENIA [None]
  - BLOOD PRESSURE SYSTOLIC DECREASED [None]
  - COUGH [None]
  - CRYPTOCOCCOSIS [None]
  - DYSPNOEA [None]
  - HEART RATE INCREASED [None]
  - MYOPATHY [None]
  - PSEUDOMONAS INFECTION [None]
  - RESPIRATORY FAILURE [None]
  - UROSEPSIS [None]
